FAERS Safety Report 11614688 (Version 1)
Quarter: 2015Q4

REPORT INFORMATION
  Report Type: Spontaneous
  Country: US (occurrence: None)
  Receive Date: 20151008
  Receipt Date: 20151008
  Transmission Date: 20160304
  Serious: Yes (Other)
  Sender: FDA-Public Use
  Company Number: None

PATIENT
  Age: 60 Year
  Sex: Male

DRUGS (3)
  1. SOVALDI [Concomitant]
     Active Substance: SOFOSBUVIR
  2. RIBAVIRIN. [Suspect]
     Active Substance: RIBAVIRIN
     Indication: HEPATITIS C
     Dosage: 3 TABLETS (600MG) IN MORNING
     Route: 048
     Dates: start: 201501
  3. RIBAVIRIN. [Suspect]
     Active Substance: RIBAVIRIN
     Indication: PRODUCT USED FOR UNKNOWN INDICATION
     Dosage: 3 TABLETS (600MG) IN MORNING
     Route: 048
     Dates: start: 201501

REACTIONS (3)
  - Parosmia [None]
  - Skin disorder [None]
  - Inappropriate schedule of drug administration [None]
